FAERS Safety Report 6357590-1 (Version None)
Quarter: 2009Q3

REPORT INFORMATION
  Report Type: 
  Country: None (occurrence: None)
  Receive Date: 20090916
  Receipt Date: 20090910
  Transmission Date: 20100115
  Serious: Yes (Hospitalization)
  Sender: FDA-Public Use
  Company Number: PHHO2009IT09387

PATIENT
  Sex: Female
  Weight: 75 kg

DRUGS (12)
  1. STI571/CGP57148B T35717+CAPS [Suspect]
     Indication: ACUTE LYMPHOCYTIC LEUKAEMIA
     Dosage: 600 MG, QD
     Route: 048
     Dates: start: 20090522, end: 20090610
  2. DASATINIB [Suspect]
     Indication: ACUTE LYMPHOCYTIC LEUKAEMIA
     Dosage: UNK
     Dates: start: 20090615
  3. DIFLUCAN [Concomitant]
  4. DELTACORTENE [Concomitant]
  5. ANTRA [Concomitant]
  6. ZYLORIC [Concomitant]
  7. ZOVIRAX [Concomitant]
  8. BACTRIM [Concomitant]
  9. PREDNISONE [Concomitant]
  10. TRIMETHOPRIM [Concomitant]
  11. SULPHAMETHOXAZOLE [Concomitant]
  12. FLUCONAZOLE [Concomitant]

REACTIONS (2)
  - BLOOD AMYLASE INCREASED [None]
  - LIPASE INCREASED [None]
